FAERS Safety Report 6488620-4 (Version None)
Quarter: 2009Q4

REPORT INFORMATION
  Report Type: 
  Country: None (occurrence: None)
  Receive Date: 20091210
  Receipt Date: 20091130
  Transmission Date: 20100525
  Serious: Yes (Hospitalization, Other)
  Sender: FDA-Public Use
  Company Number: US-SANOFI-AVENTIS-2009SA006261

PATIENT
  Age: 82 Year
  Sex: Female
  Weight: 49.9 kg

DRUGS (8)
  1. LANTUS [Suspect]
     Indication: TYPE 2 DIABETES MELLITUS
     Dosage: DOSE:20 UNIT(S)
     Route: 058
     Dates: start: 20060101
  2. NOVOLOG [Suspect]
     Indication: TYPE 2 DIABETES MELLITUS
     Dosage: PER SLIDING SCALE WITH MEALS
     Route: 065
     Dates: start: 20060101
  3. LASIX [Concomitant]
  4. POTASSIUM [Concomitant]
  5. BLOOD PRESSURE MEDICATION [Concomitant]
  6. ALL OTHER THERAPEUTIC PRODUCTS [Concomitant]
  7. ANTITHROMBOTIC AGENTS [Concomitant]
  8. ALL OTHER THERAPEUTIC PRODUCTS [Concomitant]

REACTIONS (6)
  - BLOOD GLUCOSE INCREASED [None]
  - CYSTITIS [None]
  - FATIGUE [None]
  - FISTULA [None]
  - PANCREATIC CARCINOMA [None]
  - SEPSIS [None]
